FAERS Safety Report 24051973 (Version 5)
Quarter: 2024Q3

REPORT INFORMATION
  Report Type: Spontaneous
  Country: US (occurrence: US)
  Receive Date: 20240704
  Receipt Date: 20240918
  Transmission Date: 20241016
  Serious: No
  Sender: PFIZER
  Company Number: US-PFIZER INC-202400202561

PATIENT
  Age: 4 Year
  Sex: Male

DRUGS (1)
  1. GENOTROPIN [Suspect]
     Active Substance: SOMATROPIN
     Indication: Growth hormone deficiency
     Dosage: 0.7MG ADMINISTERED FOR SIX DAYS AND ONE DAY OFF, ROTATING BETWEEN BACK OF ARM, BACK OF THIGH BUTTOCK
     Dates: start: 202405

REACTIONS (4)
  - Device use error [Unknown]
  - Dose calculation error [Unknown]
  - Device leakage [Unknown]
  - Poor quality device used [Unknown]
